FAERS Safety Report 7371035-4 (Version None)
Quarter: 2011Q1

REPORT INFORMATION
  Report Type: 
  Country: None (occurrence: None)
  Receive Date: 20110324
  Receipt Date: 20110310
  Transmission Date: 20110831
  Serious: Yes (Other)
  Sender: FDA-Public Use
  Company Number: US-BAYER-2011-007860

PATIENT
  Age: 81 Year
  Sex: Male
  Weight: 65.306 kg

DRUGS (8)
  1. ZOCOR [Concomitant]
  2. NEXAVAR [Suspect]
     Dosage: 200 MG, BID
     Route: 048
     Dates: start: 20100520, end: 20110117
  3. LEVOXYL [Concomitant]
  4. NORVASC [Concomitant]
  5. NEXAVAR [Suspect]
     Indication: RENAL CELL CARCINOMA
     Dosage: 400 MG, BID
     Route: 048
     Dates: start: 20100504, end: 20100519
  6. TRAMADOL [Concomitant]
  7. HYDROXYZINE [Concomitant]
  8. FLOMAX [Concomitant]

REACTIONS (1)
  - RENAL FAILURE [None]
